FAERS Safety Report 4475163-2 (Version None)
Quarter: 2004Q4

REPORT INFORMATION
  Report Type: 
  Country: None (occurrence: None)
  Receive Date: 20041013
  Receipt Date: 20041013
  Transmission Date: 20050328
  Serious: Yes (Hospitalization)
  Sender: FDA-Public Use
  Company Number: None

PATIENT
  Age: 58 Year
  Sex: Male

DRUGS (5)
  1. ASPIRIN [Suspect]
     Indication: ARTHRALGIA
     Dates: start: 20031015, end: 20031213
  2. ASPIRIN -BC POWDERS- [Concomitant]
  3. INSULIN [Concomitant]
  4. LOSARTAN/HYDROCHLOROTHIAZIDE -HYZAAR- [Concomitant]
  5. SULAR [Concomitant]

REACTIONS (6)
  - ABDOMINAL DISCOMFORT [None]
  - GASTRIC ULCER [None]
  - GASTRITIS [None]
  - MELAENA [None]
  - MOUTH HAEMORRHAGE [None]
  - RECTAL HAEMORRHAGE [None]
